FAERS Safety Report 5733329-5 (Version None)
Quarter: 2008Q2

REPORT INFORMATION
  Report Type: 
  Country: None (occurrence: None)
  Receive Date: 20080509
  Receipt Date: 20080502
  Transmission Date: 20081010
  Serious: Yes (Hospitalization)
  Sender: FDA-Public Use
  Company Number: PHHY2008GR06225

PATIENT
  Age: 21 Month
  Sex: Male

DRUGS (1)
  1. VOLTAREN [Suspect]
     Dosage: 75 MG, UNK
     Route: 048

REACTIONS (1)
  - ACCIDENTAL EXPOSURE [None]
